FAERS Safety Report 6806067-5 (Version None)
Quarter: 2010Q2

REPORT INFORMATION
  Report Type: 
  Country: None (occurrence: None)
  Receive Date: 20100629
  Receipt Date: 20071231
  Transmission Date: 20101027
  Serious: No
  Sender: FDA-Public Use
  Company Number: US-PFIZER INC-2007103598

PATIENT
  Sex: Male
  Weight: 72.6 kg

DRUGS (3)
  1. VIAGRA [Suspect]
     Indication: ERECTILE DYSFUNCTION
     Dates: start: 20071201, end: 20071201
  2. LEVOTHYROXINE SODIUM [Concomitant]
  3. TRIAMTERENE [Concomitant]

REACTIONS (2)
  - HEADACHE [None]
  - SINUS CONGESTION [None]
